FAERS Safety Report 13406056 (Version 2)
Quarter: 2017Q2

REPORT INFORMATION
  Report Type: Spontaneous
  Country: US (occurrence: US)
  Receive Date: 20170405
  Receipt Date: 20170612
  Transmission Date: 20170830
  Serious: Yes (Death)
  Sender: FDA-Public Use
  Company Number: US-CELGENEUS-USA-2017037149

PATIENT
  Sex: Male

DRUGS (35)
  1. ATORVASTATIN [Concomitant]
     Active Substance: ATORVASTATIN
     Indication: BLOOD CHOLESTEROL
     Dosage: 10 MILLIGRAM
     Route: 048
  2. DULOXETINE. [Concomitant]
     Active Substance: DULOXETINE
     Indication: NEUROPATHY PERIPHERAL
     Dosage: 60 MILLIGRAM
     Route: 048
  3. LORAZEPAM. [Concomitant]
     Active Substance: LORAZEPAM
     Indication: ANXIETY
     Dosage: 1 MILLIGRAM
     Route: 048
  4. SODIUM CHLORIDE. [Concomitant]
     Active Substance: SODIUM CHLORIDE
     Indication: PRODUCT USED FOR UNKNOWN INDICATION
     Dosage: 200 MILLILITER
     Route: 041
     Dates: end: 20150628
  5. MORPHINE [Concomitant]
     Active Substance: MORPHINE
     Indication: PAIN
     Dosage: 15 MILLIGRAM
     Route: 048
  6. LINEZOLID. [Concomitant]
     Active Substance: LINEZOLID
     Indication: PRODUCT USED FOR UNKNOWN INDICATION
     Dosage: 600 MILLIGRAM
     Route: 041
     Dates: end: 20150628
  7. REVLIMID [Suspect]
     Active Substance: LENALIDOMIDE
     Indication: PLASMA CELL MYELOMA
     Dosage: 10 MILLIGRAM
     Route: 048
     Dates: start: 20130916, end: 20130922
  8. POMALYST [Suspect]
     Active Substance: POMALIDOMIDE
     Indication: CHEMOTHERAPY
     Dosage: 4 MILLIGRAM
     Route: 048
  9. CALCIUM CARBONATE. [Concomitant]
     Active Substance: CALCIUM CARBONATE
     Indication: MINERAL SUPPLEMENTATION
     Dosage: 500 MILLIGRAM
     Route: 048
  10. LORAZEPAM. [Concomitant]
     Active Substance: LORAZEPAM
     Indication: SLEEP DISORDER
  11. MAGNESIUM OXIDE. [Concomitant]
     Active Substance: MAGNESIUM OXIDE
     Indication: MINERAL SUPPLEMENTATION
     Dosage: 250 MILLIGRAM (2 TABLETS)
     Route: 048
  12. ONDANSETRON [Concomitant]
     Active Substance: ONDANSETRON
     Indication: NAUSEA
     Dosage: 8 MILLIGRAM
     Route: 048
  13. TAMSULOSIN [Concomitant]
     Active Substance: TAMSULOSIN
     Indication: PROSTATOMEGALY
     Dosage: .4 MILLIGRAM
     Route: 048
  14. PANTOPRAZOLE SODIUM. [Concomitant]
     Active Substance: PANTOPRAZOLE SODIUM
     Indication: GASTROINTESTINAL DISORDER
     Dosage: 40 MILLIGRAM
     Route: 048
  15. ASPIRIN. [Concomitant]
     Active Substance: ASPIRIN
     Indication: CARDIAC DISORDER
     Dosage: 81 MILLIGRAM
     Route: 048
  16. CEFPODOXIM [Concomitant]
     Indication: INFECTION PROPHYLAXIS
     Dosage: 200 MILLIGRAM
     Route: 048
  17. MIRTAZAPINE. [Concomitant]
     Active Substance: MIRTAZAPINE
     Indication: AFFECTIVE DISORDER
     Dosage: 15 MILLIGRAM
     Route: 048
  18. ONDANSETRON [Concomitant]
     Active Substance: ONDANSETRON
     Indication: VOMITING
     Dosage: 8 MILLIGRAM
     Route: 041
     Dates: end: 20150628
  19. PANOBINOSTA [Concomitant]
     Indication: CHEMOTHERAPY
     Dosage: 20 MILLIGRAM
     Route: 048
  20. MAGNESIUM OXIDE. [Concomitant]
     Active Substance: MAGNESIUM OXIDE
     Indication: SLEEP DISORDER
  21. MORPHINE [Concomitant]
     Active Substance: MORPHINE
     Dosage: 15 MILLIGRAM (0.5 TABLET)
     Route: 048
  22. SODIUM CHLORIDE. [Concomitant]
     Active Substance: SODIUM CHLORIDE
     Dosage: 10 MILLILITER
     Route: 041
     Dates: end: 20150628
  23. CB-NK [Concomitant]
     Indication: PLASMA CELL MYELOMA
     Dosage: 5X10(6) 1X10(7) 5X10(7)
     Route: 065
  24. VALACYCLOVIR [Concomitant]
     Active Substance: VALACYCLOVIR HYDROCHLORIDE
     Indication: PROSTATOMEGALY
     Dosage: 500 MILLIGRAM
     Route: 048
  25. ACETAMINOPHEN. [Concomitant]
     Active Substance: ACETAMINOPHEN
     Indication: PRODUCT USED FOR UNKNOWN INDICATION
     Dosage: 3900 MILLIGRAM
     Route: 048
     Dates: end: 20150628
  26. PIPERACILLIN/TAZOBACTAM [Concomitant]
     Active Substance: PIPERACILLIN SODIUM\TAZOBACTAM SODIUM
     Indication: PRODUCT USED FOR UNKNOWN INDICATION
     Dosage: 4.5 GRAM
     Route: 041
     Dates: end: 20150628
  27. CETIRIZINE [Concomitant]
     Active Substance: CETIRIZINE HYDROCHLORIDE
     Indication: HYPERSENSITIVITY
     Dosage: 10 MILLIGRAM
     Route: 048
  28. LISINOPRIL. [Concomitant]
     Active Substance: LISINOPRIL
     Indication: BLOOD PRESSURE MEASUREMENT
     Dosage: 20 MILLIGRAM
     Route: 048
  29. MELPHALAN. [Suspect]
     Active Substance: MELPHALAN
     Indication: PLASMA CELL MYELOMA
     Route: 065
  30. DEXAMETHASONE. [Concomitant]
     Active Substance: DEXAMETHASONE
     Indication: STEROID THERAPY
     Dosage: 5.7143 MILLIGRAM
     Route: 048
  31. GABAPENTIN. [Concomitant]
     Active Substance: GABAPENTIN
     Indication: NEUROPATHY PERIPHERAL
     Dosage: 600 MILLIGRAM
     Route: 048
  32. CENTRUM SILVER [Concomitant]
     Active Substance: MINERALS\VITAMINS
     Indication: SUPPLEMENTATION THERAPY
     Dosage: 1 TABLET
     Route: 048
  33. SENNA-DOCUSATE [Concomitant]
     Active Substance: DOCUSATE SODIUM\SENNOSIDES
     Indication: CONSTIPATION
     Dosage: 8.6/50MG (UP TO 4 TABLETS TWICE DAILY)
     Route: 048
  34. PANTOPRAZOLE SODIUM. [Concomitant]
     Active Substance: PANTOPRAZOLE SODIUM
     Dosage: 40 MILLIGRAM
     Route: 041
     Dates: end: 20150628
  35. SODIUM CHLORIDE. [Concomitant]
     Active Substance: SODIUM CHLORIDE
     Dosage: 100 MILLILITER
     Route: 041
     Dates: end: 20150628

REACTIONS (1)
  - Plasma cell myeloma [Fatal]
